FAERS Safety Report 11914010 (Version 1)
Quarter: 2016Q1

REPORT INFORMATION
  Report Type: Spontaneous
  Country: US (occurrence: US)
  Receive Date: 20160113
  Receipt Date: 20160113
  Transmission Date: 20160526
  Serious: Yes (Hospitalization, Other)
  Sender: FDA-Public Use
  Company Number: US-AMGEN-USASP2016001714

PATIENT
  Age: 66 Year
  Sex: Male
  Weight: 124.72 kg

DRUGS (1)
  1. ENBREL [Suspect]
     Active Substance: ETANERCEPT
     Indication: ANKYLOSING SPONDYLITIS
     Dosage: 50 MG, QWK
     Route: 058

REACTIONS (3)
  - Post procedural infection [Unknown]
  - Hip arthroplasty [Recovered/Resolved]
  - Skin bacterial infection [Unknown]

NARRATIVE: CASE EVENT DATE: 2013
